FAERS Safety Report 13841201 (Version 1)
Quarter: 2017Q3

REPORT INFORMATION
  Report Type: Spontaneous
  Country: US (occurrence: US)
  Receive Date: 20170807
  Receipt Date: 20170807
  Transmission Date: 20171127
  Serious: No
  Sender: FDA-Public Use
  Company Number: GXBR2016US003425

PATIENT
  Age: 89 Year
  Sex: Male

DRUGS (4)
  1. PENICILLIN V POTASSIUM TABLETS USP [Suspect]
     Active Substance: PENICILLIN V POTASSIUM
     Indication: INFECTION
     Dosage: UNK
     Route: 065
  2. NORTHERA [Suspect]
     Active Substance: DROXIDOPA
     Dosage: 400 MG, TID
     Route: 065
  3. NORTHERA [Suspect]
     Active Substance: DROXIDOPA
     Indication: PRODUCT USED FOR UNKNOWN INDICATION
     Dosage: UNK
     Route: 065
     Dates: start: 20160928
  4. NORTHERA [Suspect]
     Active Substance: DROXIDOPA
     Dosage: 500 MG, TID
     Route: 065

REACTIONS (3)
  - Fatigue [Unknown]
  - Post procedural infection [Unknown]
  - Hypertension [Unknown]

NARRATIVE: CASE EVENT DATE: 20161104
